FAERS Safety Report 6001972-4 (Version None)
Quarter: 2008Q4

REPORT INFORMATION
  Report Type: 
  Country: None (occurrence: None)
  Receive Date: 20081212
  Receipt Date: 20081201
  Transmission Date: 20090506
  Serious: Yes (Other)
  Sender: FDA-Public Use
  Company Number: 2008-187752-NL

PATIENT
  Sex: Female

DRUGS (1)
  1. NUVARING [Suspect]

REACTIONS (1)
  - TRANSIENT ISCHAEMIC ATTACK [None]
